FAERS Safety Report 18622865 (Version 1)
Quarter: 2020Q4

REPORT INFORMATION
  Report Type: Spontaneous
  Country: US (occurrence: US)
  Receive Date: 20201216
  Receipt Date: 20201216
  Transmission Date: 20210114
  Serious: Yes (Disabling, Other)
  Sender: FDA-Public Use
  Company Number: None

PATIENT
  Sex: Female

DRUGS (2)
  1. MIRALAX [Suspect]
     Active Substance: POLYETHYLENE GLYCOL 3350
     Indication: ENCOPRESIS
     Dosage: ?          QUANTITY:1 1;?
     Route: 048
     Dates: start: 20121201, end: 20151201
  2. MIRALAX [Suspect]
     Active Substance: POLYETHYLENE GLYCOL 3350
     Indication: MEGACOLON
     Dosage: ?          QUANTITY:1 1;?
     Route: 048
     Dates: start: 20121201, end: 20151201

REACTIONS (4)
  - Tremor [None]
  - Anxiety [None]
  - Suicidal ideation [None]
  - Anger [None]
